FAERS Safety Report 23469375 (Version 2)
Quarter: 2024Q1

REPORT INFORMATION
  Report Type: Spontaneous
  Country: NL (occurrence: NL)
  Receive Date: 20240202
  Receipt Date: 20240215
  Transmission Date: 20240409
  Serious: Yes (Hospitalization, Other)
  Sender: FDA-Public Use
  Company Number: NL-LRB-00943907

PATIENT
  Age: 41 Year
  Sex: Female
  Weight: 57 kg

DRUGS (4)
  1. ACYCLOVIR [Suspect]
     Active Substance: ACYCLOVIR
     Indication: Herpes ophthalmic
     Dosage: UNK
     Route: 065
     Dates: start: 19920101, end: 20220101
  2. PREDNISOLONE [Suspect]
     Active Substance: PREDNISOLONE
     Indication: Hypersensitivity
     Dosage: UNK
     Route: 065
     Dates: start: 20210101
  3. PREDNISOLONE [Suspect]
     Active Substance: PREDNISOLONE
     Indication: Swelling face
  4. ELOCON [Suspect]
     Active Substance: MOMETASONE FUROATE
     Indication: Eczema
     Dosage: 1 DOSAGE FORM, ONCE A DAY (ONCE A DAY FOR CERTAIN PERIODS OFF AND ON, WATER EMULIZING)
     Route: 065
     Dates: start: 19840101, end: 20220201

REACTIONS (10)
  - Topical steroid withdrawal reaction [Recovering/Resolving]
  - Neuralgia [Recovering/Resolving]
  - Muscle spasms [Recovering/Resolving]
  - Feeling cold [Recovering/Resolving]
  - Insomnia [Recovering/Resolving]
  - Lymphatic disorder [Recovering/Resolving]
  - Pruritus [Recovering/Resolving]
  - Dry mouth [Recovering/Resolving]
  - Skin exfoliation [Recovering/Resolving]
  - Skin burning sensation [Recovering/Resolving]
